FAERS Safety Report 5218869-X (Version None)
Quarter: 2007Q1

REPORT INFORMATION
  Report Type: 
  Country: None (occurrence: None)
  Receive Date: 20070123
  Receipt Date: 20070109
  Transmission Date: 20070707
  Serious: Yes (Hospitalization)
  Sender: FDA-Public Use
  Company Number: 2007RR-05217

PATIENT
  Age: 22 Year
  Sex: Male

DRUGS (5)
  1. CIPROFLOXACIN [Suspect]
     Indication: PNEUMONIA
  2. DOXYCYCLINE [Concomitant]
  3. PIPERACILLIN [Concomitant]
  4. CEFTRIAXONE [Concomitant]
  5. VANCOMYCIN HYDROCHLORIDE [Concomitant]

REACTIONS (1)
  - TORSADE DE POINTES [None]
